FAERS Safety Report 9756335 (Version 5)
Quarter: 2014Q1

REPORT INFORMATION
  Report Type: Spontaneous
  Country: JP (occurrence: JP)
  Receive Date: 20131213
  Receipt Date: 20140307
  Transmission Date: 20141002
  Serious: Yes (Death, Life-Threatening, Other)
  Sender: FDA-Public Use
  Company Number: JP-OTSUKA-JP-2013-15729

PATIENT
  Age: 65 Year
  Sex: Male

DRUGS (10)
  1. SAMSCA [Suspect]
     Indication: CARDIAC FAILURE CONGESTIVE
     Dosage: 15 MG MILLIGRAM(S), SINGLE
     Route: 048
     Dates: start: 20131127, end: 20131127
  2. OMEPRAZOLE [Concomitant]
     Dosage: 20 MG MILLIGRAM(S), DAILY DOSE
     Route: 048
     Dates: end: 20131128
  3. BAYASPIRIN [Concomitant]
     Dosage: 100 MG MILLIGRAM(S), DAILY DOSE
     Route: 048
     Dates: end: 20131128
  4. CRESTOR [Concomitant]
     Dosage: 5 MG MILLIGRAM(S), DAILY DOSE
     Route: 048
     Dates: end: 20131128
  5. ARTIST [Concomitant]
     Dosage: 5 MG MILLIGRAM(S), DAILY DOSE
     Route: 048
     Dates: end: 20131128
  6. PLAVIX [Concomitant]
     Dosage: 75 MG MILLIGRAM(S), DAILY DOSE
     Route: 048
     Dates: start: 20120921, end: 20131128
  7. HANP [Concomitant]
     Dosage: 2000 MCG, DAILY DOSE
     Route: 041
     Dates: start: 20131126
  8. PRIMPERAN [Concomitant]
     Dosage: 2 DF DOSAGE FORM, DAILY DOSE
     Route: 042
     Dates: start: 20131127
  9. LASIX [Concomitant]
     Dosage: UNK
     Route: 048
     Dates: end: 20131128
  10. ACTIT [Concomitant]
     Dosage: 500 ML MILLILITRE(S), DAILY DOSE
     Route: 041

REACTIONS (5)
  - Cardiac failure [Fatal]
  - Hepatic function abnormal [Recovering/Resolving]
  - Blood pressure decreased [Unknown]
  - Vomiting [Unknown]
  - Nausea [Unknown]
